FAERS Safety Report 13346491 (Version 1)
Quarter: 2017Q1

REPORT INFORMATION
  Report Type: Spontaneous
  Country: US (occurrence: US)
  Receive Date: 20170317
  Receipt Date: 20170317
  Transmission Date: 20170428
  Serious: Yes (Hospitalization)
  Sender: FDA-Public Use
  Company Number: US-RARE DISEASE THERAPEUTICS, INC.-1064357

PATIENT
  Age: 13 Year
  Sex: Male
  Weight: 45.36 kg

DRUGS (6)
  1. FOLBEE [Concomitant]
     Active Substance: CYANOCOBALAMIN\FOLIC ACID\PYRIDOXINE HYDROCHLORIDE
  2. HUMALOG [Concomitant]
     Active Substance: INSULIN LISPRO
  3. LEVOCARNITINE. [Concomitant]
     Active Substance: LEVOCARNITINE
  4. HUMALIN [Concomitant]
     Active Substance: INSULIN NOS
  5. CYSTADANE [Suspect]
     Active Substance: BETAINE
     Indication: AMINO ACID METABOLISM DISORDER
     Dates: start: 20140129
  6. HYDROXOCOBALAMIN [Concomitant]
     Active Substance: HYDROXOCOBALAMIN

REACTIONS (2)
  - Off label use [None]
  - Type 1 diabetes mellitus [Unknown]

NARRATIVE: CASE EVENT DATE: 20140729
